FAERS Safety Report 26108886 (Version 1)
Quarter: 2025Q4

REPORT INFORMATION
  Report Type: Spontaneous
  Country: CO (occurrence: CO)
  Receive Date: 20251201
  Receipt Date: 20251201
  Transmission Date: 20260117
  Serious: Yes (Hospitalization)
  Sender: SANDOZ
  Company Number: CO-002147023-NVSC2025CO124989

PATIENT
  Age: 82 Year
  Sex: Male
  Weight: 69 kg

DRUGS (3)
  1. EXELON [Suspect]
     Active Substance: RIVASTIGMINE TARTRATE
     Indication: Dementia Alzheimer^s type
     Dosage: 1 DOSAGE FORM, QD
     Route: 062
  2. EXELON [Suspect]
     Active Substance: RIVASTIGMINE TARTRATE
     Dosage: 1 DOSAGE FORM, QD
     Route: 062
     Dates: start: 20250516
  3. EXELON [Suspect]
     Active Substance: RIVASTIGMINE TARTRATE
     Dosage: 1 UNK, QD
     Route: 062
     Dates: start: 20250519

REACTIONS (4)
  - Yellow skin [Recovered/Resolved]
  - Abdominal pain [Recovered/Resolved]
  - Asthenia [Recovered/Resolved]
  - Product dose omission in error [Recovered/Resolved]

NARRATIVE: CASE EVENT DATE: 20250515
